FAERS Safety Report 25098688 (Version 4)
Quarter: 2025Q3

REPORT INFORMATION
  Report Type: Spontaneous
  Country: EU (occurrence: EU)
  Receive Date: 20250320
  Receipt Date: 20250730
  Transmission Date: 20251021
  Serious: Yes (Other)
  Sender: BIOGEN
  Company Number: EU-BIOGEN-2025BI01304433

PATIENT
  Age: 27 Year
  Sex: Female

DRUGS (5)
  1. SKYCLARYS [Suspect]
     Active Substance: OMAVELOXOLONE
     Indication: Friedreich^s ataxia
     Route: 050
     Dates: start: 20250214, end: 20250313
  2. SKYCLARYS [Suspect]
     Active Substance: OMAVELOXOLONE
     Dosage: RESUMED STARTING AT A DOSAGE OF 50MG/DAY
     Route: 050
     Dates: start: 20250413
  3. SKYCLARYS [Suspect]
     Active Substance: OMAVELOXOLONE
     Dosage: THEN AFTERWARDS INCREASED TO 100MG/DAY
     Route: 050
  4. LEVETIRACETAM [Concomitant]
     Active Substance: LEVETIRACETAM
     Indication: Epilepsy
     Route: 050
  5. CENOBAMATE [Concomitant]
     Active Substance: CENOBAMATE
     Indication: Epilepsy
     Route: 050

REACTIONS (3)
  - Petit mal epilepsy [Recovered/Resolved]
  - Insomnia [Recovered/Resolved]
  - Sleep deficit [Recovered/Resolved]

NARRATIVE: CASE EVENT DATE: 20250311
